FAERS Safety Report 24807689 (Version 1)
Quarter: 2025Q1

REPORT INFORMATION
  Report Type: Report from Study
  Country: US (occurrence: US)
  Receive Date: 20250105
  Receipt Date: 20250105
  Transmission Date: 20250409
  Serious: Yes (Other)
  Sender: ABBVIE
  Company Number: US-ABBVIE-6069613

PATIENT
  Age: 59 Year
  Sex: Male

DRUGS (2)
  1. DUOPA [Suspect]
     Active Substance: CARBIDOPA\LEVODOPA
     Indication: Product used for unknown indication
     Route: 050
     Dates: start: 202412
  2. DUOPA [Suspect]
     Active Substance: CARBIDOPA\LEVODOPA

REACTIONS (6)
  - Seizure [Unknown]
  - Panic attack [Unknown]
  - Pain in extremity [Unknown]
  - Drug withdrawal syndrome [Unknown]
  - Pain [Unknown]
  - Hyperacusis [Unknown]

NARRATIVE: CASE EVENT DATE: 20241201
